FAERS Safety Report 7749304 (Version 3)
Quarter: 2013Q2

REPORT INFORMATION
  Report Type: Spontaneous
  Country: GB (occurrence: GB)
  Receive Date: 20110105
  Receipt Date: 20130506
  Transmission Date: 20140414
  Serious: Yes (Death, Other)
  Sender: FDA-Public Use
  Company Number: PHHY2011GB00440

PATIENT
  Age: 43 Year
  Sex: Male
  Weight: 30 kg

DRUGS (3)
  1. METRONIDAZOLE [Suspect]
     Route: 042
  2. HYDROCORTISONE [Suspect]
     Route: 042
  3. PARACETAMOL [Suspect]
     Dosage: 4 G, DAILY
     Route: 048

REACTIONS (7)
  - Multi-organ failure [Fatal]
  - Acute hepatic failure [Fatal]
  - Lactic acidosis [Unknown]
  - Confusional state [Unknown]
  - Tachypnoea [Unknown]
  - International normalised ratio increased [Unknown]
  - Drug level increased [Unknown]
